FAERS Safety Report 9333343 (Version 2)
Quarter: 2013Q3

REPORT INFORMATION
  Report Type: Report from Study
  Country: US (occurrence: US)
  Receive Date: 20130606
  Receipt Date: 20130829
  Transmission Date: 20140515
  Serious: Yes (Death, Hospitalization, Other)
  Sender: FDA-Public Use
  Company Number: US-PFIZER INC-2013166052

PATIENT
  Age: 54 Year
  Sex: Male
  Weight: 120.64 kg

DRUGS (21)
  1. IRINOTECAN HCL [Suspect]
     Indication: COLORECTAL CANCER METASTATIC
     Dosage: 150 MG/M2, DAY ONE EVERY 14 DAYS
     Route: 042
     Dates: start: 20120321
  2. FLUOROURACIL [Suspect]
     Indication: COLORECTAL CANCER METASTATIC
     Dosage: 200 MG/M2 BOLUS, ON DAY ONE EVERY 14 DAYS
     Route: 040
     Dates: start: 20120321, end: 20121030
  3. FLUOROURACIL [Suspect]
     Dosage: 2000 MG/M2, ON DAYS ONE AND TWO EVERY 14 DAYS
     Route: 042
     Dates: start: 20120321, end: 20121030
  4. FLUOROURACIL [Suspect]
     Dosage: 200 MG/M2 BOLUS, ON DAY ONE EVERY 14 DAYS
     Route: 040
     Dates: start: 20121113
  5. FLUOROURACIL [Suspect]
     Dosage: 2000 MG/M2, ON DAYS ONE AND TWO EVERY 14 DAYS
     Route: 042
     Dates: start: 20121113
  6. BLINDED THERAPY [Suspect]
     Indication: COLORECTAL CANCER METASTATIC
     Dosage: UNK
     Dates: start: 20120321
  7. FOLINIC ACID [Suspect]
     Indication: COLORECTAL CANCER METASTATIC
     Dosage: 400 MG/M2, CYCLIC DAY ONE EVERY 14 DAYS
     Route: 042
     Dates: start: 20120321
  8. ASPIRIN [Concomitant]
     Indication: CARDIOVASCULAR EVENT PROPHYLAXIS
     Dosage: UNK
     Dates: start: 20120110, end: 20121206
  9. SIMVASTATIN [Concomitant]
     Indication: HYPERCHOLESTEROLAEMIA
     Dosage: UNK
     Dates: start: 20120110, end: 20121205
  10. TRAZODONE [Concomitant]
     Indication: INSOMNIA
     Dosage: UNK
     Dates: start: 20110801, end: 20130122
  11. METFORMIN [Concomitant]
     Indication: DIABETES MELLITUS
     Dosage: UNK
     Dates: start: 20120323, end: 20121217
  12. OXYCODONE [Concomitant]
     Indication: PAIN
     Dosage: UNK
     Dates: start: 20120416, end: 20130129
  13. OXYCODONE [Concomitant]
     Dosage: 10 MG, UNK
     Dates: start: 20121030, end: 20121030
  14. TERAZOSIN [Concomitant]
     Indication: POLLAKIURIA
     Dosage: UNK
     Dates: start: 20120515, end: 20121206
  15. SPIRONOLACTONE [Concomitant]
     Indication: DIURETIC THERAPY
     Dosage: UNK
     Dates: start: 20120803, end: 20121206
  16. OMEPRAZOLE [Concomitant]
     Indication: GASTROOESOPHAGEAL REFLUX DISEASE
     Dosage: UNK
     Dates: start: 20120918, end: 20121206
  17. ESTRADIOL [Concomitant]
     Indication: GENDER IDENTITY DISORDER
     Dosage: UNK
     Dates: start: 20120803, end: 20130129
  18. LISINOPRIL [Concomitant]
     Indication: HYPERTENSION
     Dosage: UNK
     Dates: start: 20120801, end: 20130120
  19. MEDROXYPROGESTERONE [Concomitant]
     Indication: GENDER IDENTITY DISORDER
     Dosage: UNK
     Dates: start: 20120803, end: 20130129
  20. ATENOLOL [Concomitant]
     Indication: HYPERTENSION
     Dosage: UNK
     Dates: start: 20120801, end: 20121206
  21. LOPERAMIDE [Concomitant]
     Indication: PROPHYLAXIS AGAINST DIARRHOEA
     Dosage: UNK
     Dates: start: 20120611, end: 20121114

REACTIONS (4)
  - Oesophagitis [Not Recovered/Not Resolved]
  - Gastritis [Not Recovered/Not Resolved]
  - Disease progression [Fatal]
  - Colorectal cancer metastatic [Fatal]
